FAERS Safety Report 6444567-0 (Version None)
Quarter: 2009Q4

REPORT INFORMATION
  Report Type: 
  Country: None (occurrence: None)
  Receive Date: 20091118
  Receipt Date: 20090916
  Transmission Date: 20100525
  Serious: No
  Sender: FDA-Public Use
  Company Number: A0806558A

PATIENT
  Age: 55 Year
  Sex: Female

DRUGS (4)
  1. COREG CR [Suspect]
     Dosage: 20MG PER DAY
     Route: 048
     Dates: start: 20090701, end: 20090701
  2. BABY ASPIRIN [Concomitant]
  3. LORAZEPAM [Concomitant]
  4. LIPITOR [Concomitant]

REACTIONS (4)
  - DIZZINESS [None]
  - FEELING HOT [None]
  - HYPERTENSION [None]
  - NAUSEA [None]
